FAERS Safety Report 16919974 (Version 3)
Quarter: 2019Q4

REPORT INFORMATION
  Report Type: Spontaneous
  Country: US (occurrence: US)
  Receive Date: 20191015
  Receipt Date: 20191126
  Transmission Date: 20200122
  Serious: Yes (Other)
  Sender: FDA-Public Use
  Company Number: US-BAUSCH-BL-2019-057378

PATIENT
  Age: 81 Year
  Sex: Female
  Weight: 40.86 kg

DRUGS (5)
  1. LATANOPROST OPHTHALMIC SOLUTION 0.005% [Suspect]
     Active Substance: LATANOPROST
     Dosage: MOST RECENT BOTTLE WAS PICKED ON 14/OCT/2019
     Route: 047
     Dates: start: 201910
  2. DORZOLAMIDE [Concomitant]
     Active Substance: DORZOLAMIDE
     Indication: PRODUCT USED FOR UNKNOWN INDICATION
     Route: 047
  3. LATANOPROST OPHTHALMIC SOLUTION 0.005% [Suspect]
     Active Substance: LATANOPROST
     Indication: GLAUCOMA
     Dosage: STARTED SEVERAL YEARS AGO, ONE DROP IN EACH EYE
     Route: 047
     Dates: end: 20191006
  4. LOSARTAN. [Concomitant]
     Active Substance: LOSARTAN
     Indication: BLOOD PRESSURE ABNORMAL
  5. BRIMONIDINE [Concomitant]
     Active Substance: BRIMONIDINE TARTRATE
     Indication: PRODUCT USED FOR UNKNOWN INDICATION
     Route: 047

REACTIONS (3)
  - Product packaging quantity issue [Unknown]
  - Macular degeneration [Not Recovered/Not Resolved]
  - Therapy cessation [Unknown]

NARRATIVE: CASE EVENT DATE: 2019
